FAERS Safety Report 5532583-2 (Version None)
Quarter: 2007Q4

REPORT INFORMATION
  Report Type: 
  Country: None (occurrence: None)
  Receive Date: 20071203
  Receipt Date: 20071119
  Transmission Date: 20080405
  Serious: No
  Sender: FDA-Public Use
  Company Number: US-BOEHRINGER INGELHEIM PHARMACEUTICALS, INC.-2007-BP-24801BP

PATIENT
  Sex: Female

DRUGS (3)
  1. SPIRIVA [Suspect]
     Indication: ASTHMA
     Route: 055
     Dates: start: 20071112
  2. NADOLOL [Concomitant]
  3. SINGULAIR [Concomitant]

REACTIONS (5)
  - ANGINA PECTORIS [None]
  - DIZZINESS [None]
  - MUSCLE DISORDER [None]
  - MYALGIA [None]
  - PHARYNGEAL OEDEMA [None]
